FAERS Safety Report 8422943-4 (Version None)
Quarter: 2012Q2

REPORT INFORMATION
  Report Type: 
  Country: None (occurrence: None)
  Receive Date: 20120608
  Receipt Date: 20120530
  Transmission Date: 20120825
  Serious: Yes (Hospitalization)
  Sender: FDA-Public Use
  Company Number: JP-GLAXOSMITHKLINE-B0802183A

PATIENT
  Sex: Male

DRUGS (4)
  1. PAXIL [Suspect]
     Indication: DEPRESSION
     Dosage: 10MG PER DAY
     Route: 048
     Dates: start: 20120101, end: 20120501
  2. EPADEL S [Concomitant]
     Indication: HYPERLIPIDAEMIA
     Dosage: 1200MG PER DAY
     Route: 048
  3. SELBEX [Concomitant]
     Indication: GASTRITIS PROPHYLAXIS
     Dosage: 1G PER DAY
     Route: 048
  4. FOIPAN [Concomitant]
     Indication: PANCREATITIS
     Dosage: 200MG PER DAY
     Route: 048
     Dates: start: 20120101, end: 20120501

REACTIONS (5)
  - IMPULSIVE BEHAVIOUR [None]
  - JOINT DISLOCATION [None]
  - MEMORY IMPAIRMENT [None]
  - LUMBAR VERTEBRAL FRACTURE [None]
  - CONTUSION [None]
